FAERS Safety Report 15315452 (Version 1)
Quarter: 2018Q3

REPORT INFORMATION
  Report Type: Spontaneous
  Country: US (occurrence: US)
  Receive Date: 20180815
  Receipt Date: 20180815
  Transmission Date: 20181010
  Serious: Yes (Life-Threatening, Disabling, Other)
  Sender: FDA-Public Use
  Company Number: None

PATIENT
  Age: 46 Year
  Sex: Male
  Weight: 99 kg

DRUGS (2)
  1. DEPAKOTE [Concomitant]
     Active Substance: DIVALPROEX SODIUM
  2. LATUDA [Suspect]
     Active Substance: LURASIDONE HYDROCHLORIDE
     Dosage: ?          QUANTITY:2 DF DOSAGE FORM;?
     Route: 048
     Dates: start: 20180806, end: 20180815

REACTIONS (10)
  - Insomnia [None]
  - Blood glucose decreased [None]
  - Thirst [None]
  - Body temperature increased [None]
  - Akathisia [None]
  - Musculoskeletal stiffness [None]
  - Somnolence [None]
  - Coordination abnormal [None]
  - Restless legs syndrome [None]
  - Diarrhoea [None]

NARRATIVE: CASE EVENT DATE: 20180813
